FAERS Safety Report 6456241-5 (Version None)
Quarter: 2009Q4

REPORT INFORMATION
  Report Type: 
  Country: None (occurrence: None)
  Receive Date: 20091125
  Receipt Date: 20091116
  Transmission Date: 20100525
  Serious: Yes (Other)
  Sender: FDA-Public Use
  Company Number: FR-ASTRAZENECA-2009SE27065

PATIENT
  Age: 23897 Day
  Sex: Female

DRUGS (13)
  1. NEXIUM [Suspect]
     Route: 048
     Dates: end: 20091002
  2. TERCIAN [Suspect]
     Indication: DEPRESSION
     Route: 048
     Dates: end: 20091002
  3. PREVISCAN [Suspect]
     Route: 048
     Dates: end: 20091002
  4. PREVISCAN [Suspect]
     Route: 048
     Dates: start: 20091012
  5. EFFEXOR [Suspect]
     Indication: DEPRESSION
     Route: 048
     Dates: end: 20091002
  6. DI-ANTALVIC [Suspect]
     Indication: PAIN
     Route: 048
     Dates: end: 20091002
  7. LAROXYL [Concomitant]
     Indication: DEPRESSION
     Route: 048
  8. DURAGESIC-100 [Concomitant]
     Route: 062
  9. CETORNAN [Concomitant]
  10. RIVOTRIL [Concomitant]
     Indication: DEPRESSION
     Route: 042
  11. PYOSTACINE [Concomitant]
     Route: 048
  12. COVERSYL [Concomitant]
     Route: 048
  13. LYRICA [Concomitant]
     Route: 048

REACTIONS (1)
  - CYTOLYTIC HEPATITIS [None]
